FAERS Safety Report 9600374 (Version 2)
Quarter: 2013Q4

REPORT INFORMATION
  Report Type: Spontaneous
  Country: US (occurrence: US)
  Receive Date: 20131004
  Receipt Date: 20131004
  Transmission Date: 20140711
  Serious: No
  Sender: FDA-Public Use
  Company Number: US-AMGEN-USASP2013023711

PATIENT
  Age: 24 Year
  Sex: Female
  Weight: 125.17 kg

DRUGS (3)
  1. ENBREL [Suspect]
     Indication: PSORIASIS
     Dosage: 50 MG, 2 TIMES/WK FOR THREE MONTHS
     Route: 058
     Dates: start: 20130315
  2. LEVORA-28 [Concomitant]
     Dosage: UNK, 0.15/30
     Route: 048
  3. ZYRTEC [Concomitant]
     Dosage: 5 MG, UNK
     Route: 048

REACTIONS (7)
  - Injection site bruising [Unknown]
  - Injection site pain [Not Recovered/Not Resolved]
  - Injection site pruritus [Unknown]
  - Injection site erythema [Unknown]
  - Injection site swelling [Unknown]
  - Injection site warmth [Unknown]
  - Injection site reaction [Unknown]
